FAERS Safety Report 5730921-9 (Version None)
Quarter: 2008Q2

REPORT INFORMATION
  Report Type: 
  Country: None (occurrence: None)
  Receive Date: 20080430
  Receipt Date: 20071210
  Transmission Date: 20081010
  Serious: No
  Sender: FDA-Public Use
  Company Number: 2007PV033825

PATIENT
  Age: 40 Year
  Sex: Female
  Weight: 65.7716 kg

DRUGS (5)
  1. SYMLIN [Suspect]
     Indication: TYPE 1 DIABETES MELLITUS
     Dosage: 30 MCG;TID;SC ; 15 MCG;TID;SC ; 30 MCG;TID;SC ;15 MCG;TID;SC
     Route: 058
     Dates: start: 20070701, end: 20070701
  2. SYMLIN [Suspect]
     Indication: TYPE 1 DIABETES MELLITUS
     Dosage: 30 MCG;TID;SC ; 15 MCG;TID;SC ; 30 MCG;TID;SC ;15 MCG;TID;SC
     Route: 058
     Dates: start: 20070701, end: 20070701
  3. SYMLIN [Suspect]
     Indication: TYPE 1 DIABETES MELLITUS
     Dosage: 30 MCG;TID;SC ; 15 MCG;TID;SC ; 30 MCG;TID;SC ;15 MCG;TID;SC
     Route: 058
     Dates: start: 20070901, end: 20070901
  4. SYMLIN [Suspect]
     Indication: TYPE 1 DIABETES MELLITUS
     Dosage: 30 MCG;TID;SC ; 15 MCG;TID;SC ; 30 MCG;TID;SC ;15 MCG;TID;SC
     Route: 058
     Dates: start: 20070901
  5. NOVOLOG [Concomitant]

REACTIONS (3)
  - BLOOD GLUCOSE DECREASED [None]
  - NAUSEA [None]
  - VOMITING [None]
